FAERS Safety Report 9527840 (Version 3)
Quarter: 2013Q4

REPORT INFORMATION
  Report Type: Spontaneous
  Country: GB (occurrence: None)
  Receive Date: 20130913
  Receipt Date: 20131105
  Transmission Date: 20140711
  Serious: Yes (Life-Threatening)
  Sender: FDA-Public Use
  Company Number: GB-012917

PATIENT
  Age: 21 Year
  Sex: Female

DRUGS (3)
  1. CETROTIDE [Suspect]
     Indication: OVARIAN HYPERSTIMULATION SYNDROME
     Dosage: (4 DAILY DOSES)
     Route: 058
     Dates: start: 20130901, end: 20130902
  2. DOXYCYLINE [Concomitant]
     Indication: PROPHYLAXIS
     Dosage: BID.
     Route: 048
     Dates: start: 20130902
  3. MENOPUR [Suspect]
     Indication: OVULATION INDUCTION
     Route: 042
     Dates: start: 20130828

REACTIONS (2)
  - Anaphylactic reaction [None]
  - Hypersensitivity [None]
